FAERS Safety Report 8006293-6 (Version None)
Quarter: 2011Q4

REPORT INFORMATION
  Report Type: 
  Country: None (occurrence: None)
  Receive Date: 20111226
  Receipt Date: 20111214
  Transmission Date: 20120403
  Serious: Yes (Hospitalization)
  Sender: FDA-Public Use
  Company Number: US-BAYER-2011-040058

PATIENT
  Age: 40 Year
  Sex: Female
  Weight: 96 kg

DRUGS (8)
  1. COMBIVENT/PREDNISONE [Concomitant]
     Indication: DYSPNOEA
  2. YAZ [Suspect]
  3. TRAZODONE HCL [Concomitant]
     Indication: INSOMNIA
     Dosage: 50 MG, UNK
     Route: 048
     Dates: start: 20050101
  4. DROSPIRENONE AND ETHINYL ESTRADIOL [Suspect]
     Indication: CONTRACEPTION
     Dosage: UNK
     Dates: start: 20060301, end: 20100126
  5. LEXAPRO [Concomitant]
     Indication: DEPRESSION
     Dosage: 10 MG, UNK
     Route: 048
     Dates: start: 20050101
  6. YASMIN [Suspect]
     Indication: CONTRACEPTION
     Dosage: UNK
     Dates: start: 20060301, end: 20100101
  7. FIORICET [Concomitant]
     Indication: MIGRAINE
     Dosage: UNK
     Dates: start: 20080101
  8. COMBIVENT/PREDNISONE [Concomitant]
     Indication: ASTHMA
     Dosage: UNK
     Dates: start: 20090101, end: 20100101

REACTIONS (8)
  - DEEP VEIN THROMBOSIS [None]
  - INJURY [None]
  - INTERNATIONAL NORMALISED RATIO DECREASED [None]
  - MENTAL DISORDER [None]
  - PULMONARY EMBOLISM [None]
  - PLEURISY [None]
  - FIBRIN D DIMER INCREASED [None]
  - PAIN [None]
